FAERS Safety Report 6772045-8 (Version None)
Quarter: 2010Q2

REPORT INFORMATION
  Report Type: 
  Country: None (occurrence: None)
  Receive Date: 20100616
  Receipt Date: 20100611
  Transmission Date: 20101027
  Serious: Yes (Hospitalization)
  Sender: FDA-Public Use
  Company Number: A0839462A

PATIENT
  Age: 56 Year
  Sex: Female
  Weight: 83.2 kg

DRUGS (8)
  1. AVANDIA [Suspect]
     Indication: DIABETES MELLITUS
     Dosage: 4MG PER DAY
     Route: 048
     Dates: start: 20030401, end: 20071101
  2. AMARYL [Concomitant]
  3. ZOLOFT [Concomitant]
  4. COZAAR [Concomitant]
  5. HCTZ [Concomitant]
  6. TOPROL-XL [Concomitant]
  7. VYTORIN [Concomitant]
  8. PRILOSEC [Concomitant]

REACTIONS (9)
  - CARDIAC DISORDER [None]
  - CORONARY ARTERY DISEASE [None]
  - DECREASED ACTIVITY [None]
  - ECONOMIC PROBLEM [None]
  - FATIGUE [None]
  - MYOCARDIAL INFARCTION [None]
  - OEDEMA PERIPHERAL [None]
  - PAIN [None]
  - WEIGHT INCREASED [None]
